FAERS Safety Report 8142219-2 (Version None)
Quarter: 2012Q1

REPORT INFORMATION
  Report Type: 
  Country: None (occurrence: None)
  Receive Date: 20120216
  Receipt Date: 20120203
  Transmission Date: 20120608
  Serious: Yes (Other)
  Sender: FDA-Public Use
  Company Number: CHPA2012CA001179

PATIENT
  Age: 21 Year
  Sex: Male
  Weight: 63.492 kg

DRUGS (5)
  1. IBUPROFEN [Suspect]
     Dosage: UNK, UNK
     Dates: start: 20120102
  2. ADVIL COLD AND SINUS [Suspect]
     Indication: NASAL CONGESTION
     Dosage: UNK, Q4-6H
     Route: 048
     Dates: start: 20120101, end: 20120104
  3. TYLENOL SINUS [Suspect]
     Dosage: UNK, UNK
     Dates: start: 20120102
  4. IBUPROFEN (ADVIL) [Suspect]
     Dosage: UNK, UNK
  5. NEOCITRAN UNKNOWN [Suspect]
     Indication: NASOPHARYNGITIS
     Dosage: UNK, UNK
     Dates: start: 20120101, end: 20120104

REACTIONS (4)
  - DEHYDRATION [None]
  - CHEST PAIN [None]
  - MYOCARDITIS [None]
  - PHARYNGITIS STREPTOCOCCAL [None]
